FAERS Safety Report 18841797 (Version 1)
Quarter: 2021Q1

REPORT INFORMATION
  Report Type: Spontaneous
  Country: US (occurrence: US)
  Receive Date: 20210204
  Receipt Date: 20210204
  Transmission Date: 20210419
  Serious: No
  Sender: FDA-Public Use
  Company Number: US-ACCORD-209441

PATIENT
  Age: 42 Year
  Sex: Male
  Weight: 53.52 kg

DRUGS (3)
  1. HALDOL [Concomitant]
     Active Substance: HALOPERIDOL
  2. ARIPIPRAZOLE. [Suspect]
     Active Substance: ARIPIPRAZOLE
     Indication: BIPOLAR DISORDER
     Dosage: STRENGTH:10 MG, IN EVENING, DOSE INCREAS ED FROM 10 MG TO 30 MG ON 17?NOV?2020
     Dates: start: 20201020
  3. CLOZARIL [Concomitant]
     Active Substance: CLOZAPINE
     Dosage: STRENGTH: 300 MG

REACTIONS (6)
  - Decreased appetite [Not Recovered/Not Resolved]
  - Heart rate abnormal [Not Recovered/Not Resolved]
  - Laziness [Not Recovered/Not Resolved]
  - Restlessness [Not Recovered/Not Resolved]
  - Weight increased [Not Recovered/Not Resolved]
  - Insomnia [Not Recovered/Not Resolved]
